FAERS Safety Report 12642849 (Version 6)
Quarter: 2018Q1

REPORT INFORMATION
  Report Type: Spontaneous
  Country: US (occurrence: US)
  Receive Date: 20160811
  Receipt Date: 20180130
  Transmission Date: 20180508
  Serious: Yes (Other)
  Sender: FDA-Public Use
  Company Number: PHHY2016US109931

PATIENT
  Age: 28 Year
  Sex: Female
  Weight: 79.37 kg

DRUGS (1)
  1. ZOFRAN [Suspect]
     Active Substance: ONDANSETRON HYDROCHLORIDE
     Indication: VOMITING IN PREGNANCY
     Dosage: 4 MG, UNK
     Route: 048
     Dates: start: 200008, end: 200012

REACTIONS (15)
  - Dysuria [Unknown]
  - Headache [Unknown]
  - Premature delivery [Unknown]
  - Urinary tract infection [Unknown]
  - Premature labour [Unknown]
  - Maternal exposure during pregnancy [Unknown]
  - Product use in unapproved indication [Unknown]
  - Lymphadenopathy [Unknown]
  - Emotional distress [Unknown]
  - Dysfunctional uterine bleeding [Unknown]
  - Anxiety [Unknown]
  - Uterine leiomyoma [Unknown]
  - Abdominal pain lower [Unknown]
  - Fungal infection [Unknown]
  - Pain [Unknown]

NARRATIVE: CASE EVENT DATE: 20010223
